FAERS Safety Report 21737155 (Version 1)
Quarter: 2022Q4

REPORT INFORMATION
  Report Type: Spontaneous
  Country: US (occurrence: US)
  Receive Date: 20221216
  Receipt Date: 20221216
  Transmission Date: 20230113
  Serious: Yes (Other)
  Sender: FDA-Public Use
  Company Number: US-PADAGIS-2022PAD01135

PATIENT

DRUGS (2)
  1. IMIQUIMOD [Suspect]
     Active Substance: IMIQUIMOD
     Indication: Malignant melanoma
     Dosage: 3 TIME WEEKLY
     Route: 065
  2. IMIQUIMOD [Suspect]
     Active Substance: IMIQUIMOD
     Indication: Lentigo maligna

REACTIONS (1)
  - Drug ineffective for unapproved indication [Unknown]
